FAERS Safety Report 18367947 (Version 1)
Quarter: 2020Q4

REPORT INFORMATION
  Report Type: Spontaneous
  Country: AU (occurrence: AU)
  Receive Date: 20201009
  Receipt Date: 20201009
  Transmission Date: 20210114
  Serious: No
  Sender: FDA-Public Use
  Company Number: AU-JNJFOC-20200938295

PATIENT
  Age: 79 Year
  Sex: Female

DRUGS (8)
  1. DUROGESIC [Suspect]
     Active Substance: FENTANYL
     Indication: PRODUCT USED FOR UNKNOWN INDICATION
     Route: 062
  2. DUROGESIC [Suspect]
     Active Substance: FENTANYL
  3. DUROGESIC [Suspect]
     Active Substance: FENTANYL
     Indication: PRODUCT USED FOR UNKNOWN INDICATION
     Route: 062
  4. DUROGESIC [Suspect]
     Active Substance: FENTANYL
  5. DUROGESIC [Suspect]
     Active Substance: FENTANYL
  6. DUROGESIC [Suspect]
     Active Substance: FENTANYL
  7. DUROGESIC [Suspect]
     Active Substance: FENTANYL
  8. DUROGESIC [Suspect]
     Active Substance: FENTANYL

REACTIONS (3)
  - Incorrect dose administered [Unknown]
  - Therapeutic product effect decreased [Unknown]
  - Product packaging issue [Unknown]
